FAERS Safety Report 9456401 (Version 1)
Quarter: 2013Q3

REPORT INFORMATION
  Report Type: Spontaneous
  Country: DE (occurrence: DE)
  Receive Date: 20130813
  Receipt Date: 20130813
  Transmission Date: 20140515
  Serious: Yes (Other)
  Sender: FDA-Public Use
  Company Number: DE-PFIZER INC-2013232798

PATIENT
  Sex: Female

DRUGS (1)
  1. FASTJEKT [Suspect]
     Dosage: (1 IN 1 TOTAL)
     Dates: start: 20130709, end: 20130709

REACTIONS (8)
  - Accidental exposure to product [Recovered/Resolved]
  - Palpitations [Recovered/Resolved]
  - Injection site hypoaesthesia [Recovered/Resolved]
  - Injection site ischaemia [Recovered/Resolved]
  - Tremor [Recovered/Resolved]
  - Injection site swelling [Recovered/Resolved]
  - Hyperhidrosis [Recovered/Resolved]
  - Injection site pain [Recovered/Resolved]
